FAERS Safety Report 25091882 (Version 1)
Quarter: 2025Q1

REPORT INFORMATION
  Report Type: Spontaneous
  Country: JP (occurrence: JP)
  Receive Date: 20250318
  Receipt Date: 20250318
  Transmission Date: 20250409
  Serious: Yes (Hospitalization)
  Sender: NOVARTIS
  Company Number: JP-002147023-NVSJ2025JP003382

PATIENT
  Age: 61 Year
  Sex: Male

DRUGS (1)
  1. BEOVU [Suspect]
     Active Substance: BROLUCIZUMAB-DBLL
     Indication: Diabetic retinal oedema
     Route: 031
     Dates: start: 20241010, end: 20241010

REACTIONS (2)
  - Cerebral infarction [Recovered/Resolved]
  - Adrenomegaly [Unknown]

NARRATIVE: CASE EVENT DATE: 20241208
